FAERS Safety Report 8503637-3 (Version None)
Quarter: 2012Q3

REPORT INFORMATION
  Report Type: 
  Country: None (occurrence: None)
  Receive Date: 20120711
  Receipt Date: 20120626
  Transmission Date: 20120928
  Serious: Yes (Congenital Anomaly)
  Sender: FDA-Public Use
  Company Number: DE-WATSON-2012-11386

PATIENT
  Sex: Male
  Weight: 2.8 kg

DRUGS (3)
  1. CITALOPRAM HYDROBROMIDE [Suspect]
     Indication: DEPRESSION
     Dosage: 20 MG/D; REDUCED TO 10 MG/D
     Route: 064
     Dates: start: 20100511, end: 20100808
  2. INFLUENZA VACCINE [Concomitant]
     Indication: IMMUNISATION
     Dosage: UNK
     Route: 064
     Dates: start: 20101115, end: 20101115
  3. FOLIC ACID [Concomitant]
     Indication: PROPHYLAXIS OF NEURAL TUBE DEFECT
     Dosage: 0.4 MG/D; ALSO PRECONCEPTIONALLY
     Route: 064
     Dates: start: 20100511, end: 20100808

REACTIONS (8)
  - RECTOURETHRAL FISTULA [None]
  - TRACHEO-OESOPHAGEAL FISTULA [None]
  - HYDROCELE [None]
  - OESOPHAGEAL ATRESIA [None]
  - ANAL ATRESIA [None]
  - VESICOURETERIC REFLUX [None]
  - ATRIAL SEPTAL DEFECT [None]
  - SPINE MALFORMATION [None]
